FAERS Safety Report 23343846 (Version 1)
Quarter: 2023Q4

REPORT INFORMATION
  Report Type: Spontaneous
  Country: JP (occurrence: JP)
  Receive Date: 20231227
  Receipt Date: 20231227
  Transmission Date: 20240110
  Serious: Yes (Other)
  Sender: FDA-Public Use
  Company Number: JP-ferring-EVA202301674FERRINGPH

PATIENT

DRUGS (2)
  1. DEGARELIX [Suspect]
     Active Substance: DEGARELIX
     Indication: Product used for unknown indication
     Dosage: 240 MG, ONCE/SINGLE
     Route: 065
     Dates: start: 202302
  2. DEGARELIX [Suspect]
     Active Substance: DEGARELIX
     Dosage: 480 MG, EVERY 3RD MONTH
     Route: 065
     Dates: start: 202303, end: 202309

REACTIONS (1)
  - Interstitial lung disease [Recovering/Resolving]

NARRATIVE: CASE EVENT DATE: 20231201
